FAERS Safety Report 18213203 (Version 3)
Quarter: 2021Q3

REPORT INFORMATION
  Report Type: Report from Study
  Country: PL (occurrence: PL)
  Receive Date: 20200831
  Receipt Date: 20210713
  Transmission Date: 20211014
  Serious: Yes (Other)
  Sender: FDA-Public Use
  Company Number: PL-JNJFOC-20200831696

PATIENT

DRUGS (1)
  1. REMICADE [Suspect]
     Active Substance: INFLIXIMAB
     Indication: CROHN^S DISEASE
     Route: 042

REACTIONS (8)
  - Pneumonia [Unknown]
  - Clostridium difficile infection [Unknown]
  - Infectious mononucleosis [Unknown]
  - Herpes zoster [Unknown]
  - Drug ineffective [Unknown]
  - Anaphylactic shock [Unknown]
  - Respiratory tract infection [Unknown]
  - Exposure during pregnancy [Unknown]
